FAERS Safety Report 5030094-4 (Version None)
Quarter: 2006Q2

REPORT INFORMATION
  Report Type: 
  Country: None (occurrence: None)
  Receive Date: 20060620
  Receipt Date: 20060608
  Transmission Date: 20061013
  Serious: Yes (Hospitalization)
  Sender: FDA-Public Use
  Company Number: FR-SANOFI-SYNTHELABO-F01200601408

PATIENT
  Sex: Female
  Weight: 82 kg

DRUGS (6)
  1. ASPIRIN [Concomitant]
     Indication: ACUTE CORONARY SYNDROME
     Dates: start: 20050731
  2. TAHOR [Concomitant]
     Indication: ACUTE CORONARY SYNDROME
     Dates: start: 20050905
  3. MOPRAL [Concomitant]
     Indication: ACUTE CORONARY SYNDROME
     Dates: start: 20050730
  4. TRIATEC [Concomitant]
     Indication: ACUTE CORONARY SYNDROME
     Dates: start: 20050801
  5. BISOPROLOL FUMARATE [Concomitant]
     Indication: ACUTE CORONARY SYNDROME
     Dates: start: 20050905
  6. CLOPIDOGREL [Suspect]
     Indication: ACUTE CORONARY SYNDROME
     Dosage: UNK
     Route: 048
     Dates: start: 20050801, end: 20060220

REACTIONS (3)
  - ANAEMIA [None]
  - ANGINA PECTORIS [None]
  - COLITIS ULCERATIVE [None]
